FAERS Safety Report 7506518-7 (Version None)
Quarter: 2011Q2

REPORT INFORMATION
  Report Type: 
  Country: None (occurrence: None)
  Receive Date: 20110520
  Receipt Date: 20110512
  Transmission Date: 20111010
  Serious: No
  Sender: FDA-Public Use
  Company Number: 2011-00361

PATIENT
  Age: 50 Year
  Sex: Male
  Weight: 95.2554 kg

DRUGS (3)
  1. ZICAM COLD REMEDY NASAL GEL [Suspect]
     Dosage: 2  DOSES , 1ST WEEKIN  APRIL-2011
  2. ADVAIR DISKUS 100/50 [Concomitant]
  3. UNKNOWN BLOOD PRESSURE MEDICATION [Concomitant]

REACTIONS (1)
  - ANOSMIA [None]
